FAERS Safety Report 4590533-X (Version None)
Quarter: 2005Q1

REPORT INFORMATION
  Report Type: 
  Country: None (occurrence: None)
  Receive Date: 20050224
  Receipt Date: 20050214
  Transmission Date: 20050727
  Serious: Yes (Hospitalization)
  Sender: FDA-Public Use
  Company Number: IT-ROCHE-395227

PATIENT
  Age: 60 Year
  Sex: Female
  Weight: 87 kg

DRUGS (2)
  1. PEG-INTERFERON ALFA 2A (RO 25-8310) [Suspect]
     Route: 058
     Dates: start: 20050116, end: 20050213
  2. RIBAVIRIN [Suspect]
     Route: 048
     Dates: start: 20050116, end: 20050213

REACTIONS (1)
  - ATRIAL FIBRILLATION [None]
